FAERS Safety Report 16045942 (Version 4)
Quarter: 2019Q2

REPORT INFORMATION
  Report Type: Spontaneous
  Country: US (occurrence: US)
  Receive Date: 20190307
  Receipt Date: 20190408
  Transmission Date: 20190711
  Serious: Yes (Other)
  Sender: FDA-Public Use
  Company Number: US-AMGEN-USASP2019035194

PATIENT
  Age: 83 Year
  Sex: Male

DRUGS (1)
  1. SENSIPAR [Suspect]
     Active Substance: CINACALCET HYDROCHLORIDE
     Indication: BLOOD CALCIUM INCREASED
     Dosage: 30 MILLIGRAM, 3 TIMES/WK
     Route: 048
     Dates: start: 201901

REACTIONS (5)
  - Crohn^s disease [Unknown]
  - Renal disorder [Unknown]
  - Intentional product misuse [Unknown]
  - Blood calcium increased [Unknown]
  - Protein total increased [Unknown]
